FAERS Safety Report 16120719 (Version 1)
Quarter: 2019Q2

REPORT INFORMATION
  Report Type: Spontaneous
  Country: US (occurrence: US)
  Receive Date: 20190327
  Receipt Date: 20190327
  Transmission Date: 20190711
  Serious: No
  Sender: FDA-Public Use
  Company Number: US-TEVA-2019-US-1020042

PATIENT
  Sex: Male

DRUGS (1)
  1. BARR FLUDROCORTISONE ACETATE [Suspect]
     Active Substance: FLUDROCORTISONE ACETATE
     Indication: ORTHOSTATIC HYPOTENSION

REACTIONS (1)
  - Therapeutic product effect decreased [Unknown]
